FAERS Safety Report 10488128 (Version 2)
Quarter: 2014Q4

REPORT INFORMATION
  Report Type: Report from Study
  Country: CA (occurrence: CA)
  Receive Date: 20141002
  Receipt Date: 20141002
  Transmission Date: 20150528
  Serious: Yes (Death)
  Sender: FDA-Public Use
  Company Number: CA-ROCHE-1031999

PATIENT
  Age: 50 Year
  Sex: Male
  Weight: 93.4 kg

DRUGS (6)
  1. BENDAMUSTINE [Suspect]
     Active Substance: BENDAMUSTINE
     Indication: NON-HODGKIN^S LYMPHOMA UNSPECIFIED HISTOLOGY INDOLENT
     Dosage: DOSE: 198, LAST DOSE 05/OCT/2011
     Route: 042
     Dates: start: 20110517
  2. OMNARIS [Concomitant]
     Active Substance: CICLESONIDE
     Indication: EAR INFECTION
     Route: 065
     Dates: start: 20111213, end: 20120101
  3. RED CELLS PACK [Concomitant]
     Route: 065
     Dates: start: 20120113, end: 20120113
  4. OBINUTUZUMAB [Suspect]
     Active Substance: OBINUTUZUMAB
     Indication: NON-HODGKIN^S LYMPHOMA UNSPECIFIED HISTOLOGY INDOLENT
     Dosage: RECENT DOSE ON 7 DEC 2011
     Route: 042
     Dates: start: 20110517
  5. RED CELLS PACK [Concomitant]
     Indication: ANAEMIA
     Dosage: 2 UNITS
     Route: 065
     Dates: start: 20120105, end: 20120105
  6. LOPERAMIDE [Concomitant]
     Active Substance: LOPERAMIDE
     Indication: DIARRHOEA
     Route: 065
     Dates: start: 20110520

REACTIONS (1)
  - Acute myeloid leukaemia [Fatal]

NARRATIVE: CASE EVENT DATE: 20120116
